FAERS Safety Report 13893997 (Version 3)
Quarter: 2017Q4

REPORT INFORMATION
  Report Type: Spontaneous
  Country: US (occurrence: US)
  Receive Date: 20170822
  Receipt Date: 20171110
  Transmission Date: 20180320
  Serious: No
  Sender: FDA-Public Use
  Company Number: US-ACTELION-A-NJ2017-158421

PATIENT
  Age: 80 Year
  Sex: Female

DRUGS (1)
  1. VALCHLOR [Suspect]
     Active Substance: MECHLORETHAMINE
     Indication: MYCOSIS FUNGOIDES
     Dosage: UNK
     Route: 061
     Dates: start: 20170803

REACTIONS (6)
  - Skin discolouration [Unknown]
  - Cough [Unknown]
  - Application site erythema [Unknown]
  - Therapeutic response decreased [Unknown]
  - Fatigue [Unknown]
  - Skin disorder [Recovering/Resolving]
